FAERS Safety Report 6217931-2 (Version None)
Quarter: 2009Q2

REPORT INFORMATION
  Report Type: 
  Country: None (occurrence: None)
  Receive Date: 20090604
  Receipt Date: 20090604
  Transmission Date: 20091009
  Serious: Yes (Life-Threatening, Other)
  Sender: FDA-Public Use
  Company Number: None

PATIENT
  Age: 60 Year
  Sex: Female
  Weight: 47.6277 kg

DRUGS (1)
  1. LORAZEPAM [Suspect]
     Indication: INSOMNIA
     Dates: start: 20090401, end: 20090525

REACTIONS (7)
  - ABDOMINAL PAIN UPPER [None]
  - GASTRIC DISORDER [None]
  - HEADACHE [None]
  - PRURITUS [None]
  - RASH [None]
  - SWELLING [None]
  - URTICARIA [None]
